FAERS Safety Report 13620494 (Version 1)
Quarter: 2017Q2

REPORT INFORMATION
  Report Type: Spontaneous
  Country: FR (occurrence: FR)
  Receive Date: 20170607
  Receipt Date: 20170607
  Transmission Date: 20170830
  Serious: Yes (Hospitalization)
  Sender: FDA-Public Use
  Company Number: FR-SA-2017SA101380

PATIENT
  Age: 55 Year
  Sex: Female

DRUGS (10)
  1. VENLAFAXINE [Suspect]
     Active Substance: VENLAFAXINE HYDROCHLORIDE
     Route: 048
     Dates: start: 20170427, end: 20170427
  2. PREGABALIN. [Suspect]
     Active Substance: PREGABALIN
     Dosage: STRENGTH: 100 MG
     Route: 048
     Dates: start: 20170427, end: 20170427
  3. IRBESARTAN. [Suspect]
     Active Substance: IRBESARTAN
     Route: 048
     Dates: start: 20170427, end: 20170427
  4. MIRTAZAPINE. [Suspect]
     Active Substance: MIRTAZAPINE
     Dosage: STRENGTH: 8.75 MG.
     Route: 048
     Dates: start: 20170427, end: 20170427
  5. DEPAMIDE [Suspect]
     Active Substance: VALPROMIDE
     Route: 048
     Dates: start: 20170427, end: 20170427
  6. PARACETAMOL [Suspect]
     Active Substance: ACETAMINOPHEN
     Route: 048
     Dates: start: 20170427
  7. PREGABALIN. [Suspect]
     Active Substance: PREGABALIN
     Dosage: STRENGTH: 100 MG
     Route: 048
     Dates: start: 20170427, end: 20170427
  8. ZOPICLONE [Suspect]
     Active Substance: ZOPICLONE
     Route: 048
     Dates: start: 20170427, end: 20170427
  9. SERESTA [Suspect]
     Active Substance: OXAZEPAM
     Route: 048
     Dates: start: 20170427, end: 20170427
  10. LANSOPRAZOLE. [Suspect]
     Active Substance: LANSOPRAZOLE
     Route: 048
     Dates: start: 20170427, end: 20170427

REACTIONS (4)
  - Miosis [Recovered/Resolved]
  - Electrocardiogram T wave inversion [Recovered/Resolved]
  - Depressed level of consciousness [Recovered/Resolved]
  - Intentional overdose [Unknown]

NARRATIVE: CASE EVENT DATE: 20170427
